FAERS Safety Report 5127194-7 (Version None)
Quarter: 2006Q4

REPORT INFORMATION
  Report Type: 
  Country: None (occurrence: None)
  Receive Date: 20061013
  Receipt Date: 20061011
  Transmission Date: 20070319
  Serious: Yes (Death, Other)
  Sender: FDA-Public Use
  Company Number: FR-ROXANE LABORATORIES, INC-2006-BP-11899RO

PATIENT
  Age: 54 Year
  Sex: Male

DRUGS (8)
  1. CYCLOPHOSPHAMIDE [Suspect]
     Indication: CHRONIC LYMPHOCYTIC LEUKAEMIA
     Route: 048
     Dates: start: 19890101, end: 19990101
  2. CYCLOPHOSPHAMIDE [Suspect]
     Dosage: 4 COURSES OF 500MG/M2/DAY FOR 3 DAYS
     Dates: start: 19990701, end: 19991001
  3. CHLORAMBUCIL [Suspect]
     Indication: CHRONIC LYMPHOCYTIC LEUKAEMIA
     Route: 048
     Dates: start: 19890101, end: 19990101
  4. FLUDARABINE [Suspect]
     Indication: CHRONIC LYMPHOCYTIC LEUKAEMIA
     Dosage: 4 COURSES OF 25MG/M2/DAY FOR 3 DAYS
     Dates: start: 19990701, end: 19991001
  5. DOXORUBICIN [Suspect]
     Indication: CHRONIC LYMPHOCYTIC LEUKAEMIA
     Dates: start: 20000101, end: 20000101
  6. ETOPOSIDE [Suspect]
     Indication: CHRONIC LYMPHOCYTIC LEUKAEMIA
     Dates: start: 20000101, end: 20000101
  7. VINCRISTINE [Suspect]
     Indication: CHRONIC LYMPHOCYTIC LEUKAEMIA
     Dates: start: 20000101, end: 20000101
  8. PREDNISOLONE [Suspect]
     Indication: CHRONIC LYMPHOCYTIC LEUKAEMIA
     Dates: start: 20000101, end: 20000101

REACTIONS (10)
  - CHRONIC LYMPHOCYTIC LEUKAEMIA TRANSFORMATION [None]
  - CLOSTRIDIAL INFECTION [None]
  - CYTOMEGALOVIRUS INFECTION [None]
  - DRUG EFFECT DECREASED [None]
  - DYSPHAGIA [None]
  - FEBRILE NEUTROPENIA [None]
  - LYMPHOPROLIFERATIVE DISORDER [None]
  - PYREXIA [None]
  - SPLENOMEGALY [None]
  - THROMBOCYTOPENIA [None]
